FAERS Safety Report 8707548 (Version 2)
Quarter: 2013Q1

REPORT INFORMATION
  Report Type: Spontaneous
  Country: BR (occurrence: BR)
  Receive Date: 20120805
  Receipt Date: 20130220
  Transmission Date: 20140127
  Serious: Yes (Other)
  Sender: FDA-Public Use
  Company Number: PHHY2012BR066210

PATIENT
  Age: 52 Year
  Sex: Female

DRUGS (6)
  1. FLOTAC [Suspect]
     Indication: PAIN
     Dosage: 70 MG, 1-2 TABLETS
     Route: 048
  2. NSAID^S [Suspect]
     Indication: ARTHRITIS
     Dosage: 1 DF, TID
  3. LOZEPREL [Suspect]
     Indication: ABDOMINAL PAIN UPPER
     Dosage: 20 MG, TID
     Route: 048
  4. OMEPRAZOLE [Concomitant]
     Indication: ULCER
     Dosage: 2 DF, QD
     Route: 048
  5. ATENOLOL [Concomitant]
     Indication: HYPERTENSION
     Dosage: 2 DF, QD
     Route: 048
  6. BROMAZEPAM [Concomitant]
     Indication: SLEEP DISORDER
     Dosage: 1 DF, QD
     Route: 048

REACTIONS (12)
  - Movement disorder [Not Recovered/Not Resolved]
  - Inflammation [Recovered/Resolved]
  - Abasia [Unknown]
  - Local swelling [Unknown]
  - Pain in extremity [Not Recovered/Not Resolved]
  - Weight increased [Not Recovered/Not Resolved]
  - Nervousness [Not Recovered/Not Resolved]
  - Limb discomfort [Not Recovered/Not Resolved]
  - Gait disturbance [Not Recovered/Not Resolved]
  - Decreased appetite [Not Recovered/Not Resolved]
  - Somnolence [Not Recovered/Not Resolved]
  - Depression [Not Recovered/Not Resolved]
